FAERS Safety Report 24075874 (Version 1)
Quarter: 2024Q3

REPORT INFORMATION
  Report Type: Spontaneous
  Country: JP (occurrence: JP)
  Receive Date: 20240710
  Receipt Date: 20240710
  Transmission Date: 20241017
  Serious: Yes (Hospitalization)
  Sender: PURDUE
  Company Number: JP-NAPPMUNDI-GBR-2024-0117883

PATIENT
  Age: 53 Year
  Sex: Male

DRUGS (1)
  1. NORSPAN [Suspect]
     Active Substance: BUPRENORPHINE
     Indication: Product used for unknown indication
     Dosage: UNK

REACTIONS (4)
  - Hospitalisation [Unknown]
  - Abnormal behaviour [Unknown]
  - Mydriasis [Unknown]
  - Aggression [Unknown]

NARRATIVE: CASE EVENT DATE: 20240704
